FAERS Safety Report 7233403-0 (Version None)
Quarter: 2011Q1

REPORT INFORMATION
  Report Type: 
  Country: None (occurrence: None)
  Receive Date: 20110119
  Receipt Date: 20110107
  Transmission Date: 20110831
  Serious: Yes (Life-Threatening, Hospitalization, Other)
  Sender: FDA-Public Use
  Company Number: US-ELI_LILLY_AND_COMPANY-US201101002030

PATIENT
  Sex: Female

DRUGS (2)
  1. FORTEO [Suspect]
     Dosage: 20 UG, DAILY (1/D)
  2. FORTEO [Suspect]
     Indication: OSTEOPOROSIS
     Dosage: 20 UG, DAILY (1/D)

REACTIONS (11)
  - PANCREATITIS [None]
  - INFLUENZA LIKE ILLNESS [None]
  - MALAISE [None]
  - SALIVA ALTERED [None]
  - PAIN [None]
  - ASTHENIA [None]
  - MULTI-ORGAN FAILURE [None]
  - BONE PAIN [None]
  - DYSPEPSIA [None]
  - DYSGEUSIA [None]
  - CHOLECYSTECTOMY [None]
